FAERS Safety Report 21214005 (Version 3)
Quarter: 2023Q2

REPORT INFORMATION
  Report Type: Report from Study
  Country: SE (occurrence: UG)
  Receive Date: 20220816
  Receipt Date: 20230515
  Transmission Date: 20230722
  Serious: Yes (Other)
  Sender: FDA-Public Use
  Company Number: SE-009507513-2207UGA009426

PATIENT
  Age: 5 Year

DRUGS (1)
  1. EFAVIRENZ [Suspect]
     Active Substance: EFAVIRENZ
     Indication: HIV infection
     Dosage: 24 WEEKS, DOSE ACCORDING TO WEIGHT BANDS
     Route: 048

REACTIONS (1)
  - Pathogen resistance [Unknown]
